FAERS Safety Report 8853364 (Version 1)
Quarter: 2012Q4

REPORT INFORMATION
  Report Type: 
  Country: JP (occurrence: JP)
  Receive Date: 20121022
  Receipt Date: 20121022
  Transmission Date: 20130627
  Serious: Yes (Hospitalization)
  Sender: FDA-Public Use
  Company Number: JP-WATSON-2012-18040

PATIENT
  Age: 7 Year
  Sex: Female

DRUGS (6)
  1. CYCLOSPORINE (WATSON LABORATORIES) [Suspect]
     Indication: APLASTIC ANAEMIA
     Dosage: 60 mg, bid
     Route: 065
  2. CYCLOSPORINE (WATSON LABORATORIES) [Suspect]
     Dosage: 3 mg/kg, bid
     Route: 065
  3. CYCLOSPORINE (WATSON LABORATORIES) [Suspect]
     Dosage: 85 ng/ml through concentration
     Route: 065
  4. METHYLPREDNISOLONE [Concomitant]
     Indication: APLASTIC ANAEMIA
     Dosage: 40 mg, daily
     Route: 065
  5. GRANULOCYTE COLONY STIMULATING FACTOR [Concomitant]
     Indication: APLASTIC ANAEMIA
     Dosage: UNK
     Route: 065
  6. ANTITHYMOCYTE IMMUNOGLOBULIN [Concomitant]
     Indication: APLASTIC ANAEMIA
     Dosage: UNK
     Route: 065

REACTIONS (2)
  - Cerebral vasoconstriction [Recovered/Resolved]
  - Cerebral haemorrhage [Recovered/Resolved]
